FAERS Safety Report 5914089-1 (Version None)
Quarter: 2008Q4

REPORT INFORMATION
  Report Type: 
  Country: None (occurrence: None)
  Receive Date: 20081009
  Receipt Date: 20080929
  Transmission Date: 20090506
  Serious: Yes (Other)
  Sender: FDA-Public Use
  Company Number: CA-JNJFOC-20080804724

PATIENT
  Sex: Female
  Weight: 48.5 kg

DRUGS (2)
  1. REMICADE [Suspect]
     Dosage: TOTAL # DOSES: 25
     Route: 042
  2. REMICADE [Suspect]
     Indication: RHEUMATOID ARTHRITIS
     Dosage: TOTAL # DOSES: 25
     Route: 042

REACTIONS (1)
  - JOINT DISLOCATION [None]
